FAERS Safety Report 13938637 (Version 1)
Quarter: 2017Q3

REPORT INFORMATION
  Report Type: Spontaneous
  Country: US (occurrence: US)
  Receive Date: 20170906
  Receipt Date: 20170906
  Transmission Date: 20171127
  Serious: No
  Sender: FDA-Public Use
  Company Number: US-BIOGEN-2017BI00451995

PATIENT
  Age: 40 Year
  Sex: Female

DRUGS (1)
  1. TECFIDERA [Suspect]
     Active Substance: DIMETHYL FUMARATE
     Indication: MULTIPLE SCLEROSIS
     Route: 065
     Dates: start: 20170826

REACTIONS (5)
  - Dizziness [Unknown]
  - Malaise [Unknown]
  - Headache [Unknown]
  - Eye symptom [Unknown]
  - Fatigue [Unknown]

NARRATIVE: CASE EVENT DATE: 201708
